FAERS Safety Report 7900582-9 (Version None)
Quarter: 2011Q4

REPORT INFORMATION
  Report Type: 
  Country: None (occurrence: None)
  Receive Date: 20111108
  Receipt Date: 20111031
  Transmission Date: 20120403
  Serious: Yes (Hospitalization)
  Sender: FDA-Public Use
  Company Number: BR-US-EMD SERONO, INC.-7068980

PATIENT
  Sex: Female

DRUGS (3)
  1. CORTICOSTEROIDS [Concomitant]
  2. REBIF [Suspect]
     Indication: RELAPSING-REMITTING MULTIPLE SCLEROSIS
     Dates: start: 20050613
  3. TYLENOL-500 [Concomitant]

REACTIONS (3)
  - ASTHENIA [None]
  - LIPOMA [None]
  - COORDINATION ABNORMAL [None]
